FAERS Safety Report 11386683 (Version 1)
Quarter: 2015Q3

REPORT INFORMATION
  Report Type: Spontaneous
  Country: US (occurrence: US)
  Receive Date: 20150817
  Receipt Date: 20150817
  Transmission Date: 20151125
  Serious: Yes (Other)
  Sender: FDA-Public Use
  Company Number: US-AMGEN-USASL2015081893

PATIENT
  Age: 61 Year
  Sex: Female

DRUGS (3)
  1. XGEVA [Suspect]
     Active Substance: DENOSUMAB
     Indication: BREAST CANCER METASTATIC
     Dosage: UNK
     Route: 065
     Dates: start: 2012
  2. AROMASIN [Concomitant]
     Active Substance: EXEMESTANE
  3. FEMARA [Concomitant]
     Active Substance: LETROZOLE
     Dosage: UNK
     Dates: start: 201501

REACTIONS (14)
  - Breast cancer metastatic [Unknown]
  - Rash [Unknown]
  - Depression [Unknown]
  - Pharyngeal ulceration [Unknown]
  - Abdominal pain upper [Recovered/Resolved]
  - Impaired driving ability [Unknown]
  - Alopecia [Unknown]
  - Rash generalised [Recovered/Resolved]
  - Metastases to spine [Unknown]
  - Lung infection [Unknown]
  - Fatigue [Unknown]
  - Pain [Unknown]
  - Intentional product misuse [Unknown]
  - Oropharyngeal pain [Unknown]

NARRATIVE: CASE EVENT DATE: 2014
